FAERS Safety Report 24793967 (Version 1)
Quarter: 2024Q4

REPORT INFORMATION
  Report Type: Spontaneous
  Country: FI (occurrence: FI)
  Receive Date: 20241231
  Receipt Date: 20241231
  Transmission Date: 20250115
  Serious: Yes (Life-Threatening, Disabling)
  Sender: MYLAN
  Company Number: None

PATIENT
  Age: 31 Year
  Sex: Male

DRUGS (3)
  1. CLOZAPINE [Suspect]
     Active Substance: CLOZAPINE
     Indication: Schizoaffective disorder
     Dosage: UNK (SYMPTOMS STARTED WITH THE DOSING 25+100 MG. THE DOSING WAS INCREASED AFTERWARDS)
     Route: 048
     Dates: start: 20240611
  2. CLOZAPINE [Suspect]
     Active Substance: CLOZAPINE
     Dosage: 300 MILLIGRAM, QD (FINAL DOSE 300 MG A DAY)
     Route: 048
     Dates: start: 2024, end: 20241121
  3. ELIQUIS [Concomitant]
     Active Substance: APIXABAN
     Indication: Pulmonary embolism
     Dosage: UNK
     Route: 048

REACTIONS (3)
  - Myocarditis [Recovered/Resolved]
  - Colitis ulcerative [Recovering/Resolving]
  - Colitis [Recovering/Resolving]
